FAERS Safety Report 5876096-7 (Version None)
Quarter: 2008Q3

REPORT INFORMATION
  Report Type: 
  Country: None (occurrence: None)
  Receive Date: 20080905
  Receipt Date: 20080822
  Transmission Date: 20090109
  Serious: Yes (Hospitalization, Other)
  Sender: FDA-Public Use
  Company Number: DEXT20080001

PATIENT
  Age: 18 Year
  Sex: Male

DRUGS (2)
  1. DEXTROAMPHETAMINE SULFATE [Suspect]
     Indication: ATTENTION DEFICIT/HYPERACTIVITY DISORDER
     Dosage: 10 MG, ONE TABLET DAILY, PER ORAL
     Route: 048
  2. RISPERIDONE [Suspect]
     Indication: SCHIZOPHRENIA
     Dosage: 2 MG, DAILY, PER ORAL; 3 MG, DAILY, PER ORAL; 4 MG, DAILY, PER ORAL
     Route: 048

REACTIONS (11)
  - AGGRESSION [None]
  - DYSTONIA [None]
  - EDUCATIONAL PROBLEM [None]
  - FLAT AFFECT [None]
  - IMPULSIVE BEHAVIOUR [None]
  - POVERTY OF SPEECH [None]
  - PSYCHOTIC DISORDER [None]
  - SCHIZOPHRENIA [None]
  - SCHOOL REFUSAL [None]
  - SOCIAL AVOIDANT BEHAVIOUR [None]
  - TORTICOLLIS [None]
